FAERS Safety Report 19487793 (Version 1)
Quarter: 2021Q3

REPORT INFORMATION
  Report Type: Spontaneous
  Country: US (occurrence: US)
  Receive Date: 20210702
  Receipt Date: 20210702
  Transmission Date: 20211014
  Serious: Yes (Hospitalization, Other)
  Sender: FDA-Public Use
  Company Number: US-ALLERGAN-2124434US

PATIENT
  Sex: Female

DRUGS (22)
  1. GUANFACINE. [Concomitant]
     Active Substance: GUANFACINE
     Dosage: 3MG ON DAY 8
     Route: 065
  2. CHLORPROMAZINE. [Concomitant]
     Active Substance: CHLORPROMAZINE
     Dosage: ON DAY 4, DAY 5, DAY 6, DAY 11, DAY 15, DAY 17, DAY 28 AND DAY 29.
     Route: 048
  3. GUANFACINE. [Concomitant]
     Active Substance: GUANFACINE
     Dosage: INCREASED TO 4MG ON DAY 17
     Route: 065
  4. FLUTICASONE. [Concomitant]
     Active Substance: FLUTICASONE
     Indication: ASTHMA
     Dosage: 1 PUFF EVERY MORNING
     Route: 065
  5. ESCITALOPRAM OXALATE ? BP [Suspect]
     Active Substance: ESCITALOPRAM OXALATE
     Dosage: 10 MG ON DAY 6 OF ADMISSION
     Route: 065
  6. LORAZEPAM. [Concomitant]
     Active Substance: LORAZEPAM
     Indication: AGGRESSION
     Dosage: ON DAY 21
     Route: 030
  7. GUANFACINE. [Concomitant]
     Active Substance: GUANFACINE
     Indication: ATTENTION DEFICIT HYPERACTIVITY DISORDER
     Dosage: ADDED ON 4TH DAY OF ADMISSION
     Route: 065
  8. GUANFACINE. [Concomitant]
     Active Substance: GUANFACINE
     Dosage: INCREASED TO 2 MG ON DAY 5 OF HER ADMISSION
     Route: 065
  9. CHLORPROMAZINE. [Concomitant]
     Active Substance: CHLORPROMAZINE
     Dosage: ON DAY 2, DAY 6, DAY 22 AND DAY 29.
     Route: 030
  10. LAMOTRIGINE. [Concomitant]
     Active Substance: LAMOTRIGINE
     Indication: AFFECTIVE DISORDER
     Dosage: ON DAY 23
     Route: 065
  11. ESCITALOPRAM OXALATE ? BP [Suspect]
     Active Substance: ESCITALOPRAM OXALATE
     Indication: PRODUCT USED FOR UNKNOWN INDICATION
     Dosage: 10 MG ON DAY 23
     Route: 065
  12. LORAZEPAM. [Concomitant]
     Active Substance: LORAZEPAM
     Dosage: ON DAY 4 AND DAY 20
     Route: 048
  13. CHLORPROMAZINE. [Concomitant]
     Active Substance: CHLORPROMAZINE
     Indication: AGGRESSION
     Dosage: ON DAY 21
     Route: 030
  14. LAMOTRIGINE. [Concomitant]
     Active Substance: LAMOTRIGINE
     Dosage: ON DAY 28
     Route: 065
  15. LORAZEPAM. [Concomitant]
     Active Substance: LORAZEPAM
     Dosage: ON DAY 4, DAY 5, DAY 6, DAY 9, DAY 10, DAY 11, DAY 15, DAY 16, DAY 17 AND DAY 18.
     Route: 048
  16. ESCITALOPRAM OXALATE ? BP [Suspect]
     Active Substance: ESCITALOPRAM OXALATE
     Dosage: 15 MG ON DAY 8 OF ADMISSION
     Route: 065
  17. TRAZODONE [Concomitant]
     Active Substance: TRAZODONE HYDROCHLORIDE
     Indication: INSOMNIA
     Dosage: ON DAY 1, DAY 2, DAY 8, DAY 10, DAY 12, DAY 13, DAY 15, DAY 19 AND DAY 20.
     Route: 065
  18. CHLORPROMAZINE. [Concomitant]
     Active Substance: CHLORPROMAZINE
     Indication: AGITATION
     Dosage: ON DAY 16 (50MG X 2)
     Route: 048
  19. ESCITALOPRAM OXALATE ? BP [Suspect]
     Active Substance: ESCITALOPRAM OXALATE
     Dosage: 5 MG, QD  IN EVERY MORNING
     Route: 065
  20. LORAZEPAM. [Concomitant]
     Active Substance: LORAZEPAM
     Indication: AGITATION
     Dosage: ON DAY 22
     Route: 030
  21. LORAZEPAM. [Concomitant]
     Active Substance: LORAZEPAM
     Dosage: ON DAY 19 (1MG X 2)
     Route: 048
  22. CHLORPROMAZINE. [Concomitant]
     Active Substance: CHLORPROMAZINE
     Dosage: ON DAY 20, DAY 21 AND DAY 23
     Route: 048

REACTIONS (2)
  - Product administered to patient of inappropriate age [Unknown]
  - Abnormal behaviour [Recovering/Resolving]
